FAERS Safety Report 4533828-8 (Version None)
Quarter: 2004Q4

REPORT INFORMATION
  Report Type: 
  Country: None (occurrence: None)
  Receive Date: 20041221
  Receipt Date: 20041213
  Transmission Date: 20050328
  Serious: Yes (Life-Threatening, Disabling)
  Sender: FDA-Public Use
  Company Number: US-MERCK-0412USA01612

PATIENT
  Age: 53 Year
  Sex: Female

DRUGS (1)
  1. VIOXX [Suspect]
     Indication: BACK PAIN
     Route: 048
     Dates: start: 20030101, end: 20030101

REACTIONS (12)
  - CARDIAC DISORDER [None]
  - CHEST PAIN [None]
  - DERMATITIS EXFOLIATIVE [None]
  - DYSPNOEA [None]
  - FEELING COLD [None]
  - FEELING HOT [None]
  - HYPOAESTHESIA [None]
  - LIVER DISORDER [None]
  - OEDEMA PERIPHERAL [None]
  - PRURITUS [None]
  - SKIN ULCER [None]
  - TRANSIENT ISCHAEMIC ATTACK [None]
